FAERS Safety Report 13619667 (Version 2)
Quarter: 2017Q2

REPORT INFORMATION
  Report Type: Spontaneous
  Country: AU (occurrence: AU)
  Receive Date: 20170606
  Receipt Date: 20170626
  Transmission Date: 20170830
  Serious: Yes (Death, Hospitalization, Other)
  Sender: FDA-Public Use
  Company Number: AU-GILEAD-2017-0275659

PATIENT
  Age: 50 Year
  Sex: Female

DRUGS (12)
  1. THYROXINE [Concomitant]
     Active Substance: LEVOTHYROXINE
  2. SALBUTAMOL [Concomitant]
     Active Substance: ALBUTEROL
  3. SPIRIVA [Concomitant]
     Active Substance: TIOTROPIUM BROMIDE MONOHYDRATE
  4. SUBOXONE [Concomitant]
     Active Substance: BUPRENORPHINE HYDROCHLORIDE\NALOXONE HYDROCHLORIDE
  5. PANTOPRAZOLE [Concomitant]
     Active Substance: PANTOPRAZOLE
  6. SERTRALINE [Concomitant]
     Active Substance: SERTRALINE HYDROCHLORIDE
  7. FERROGRADUMET [Concomitant]
  8. SERETIDE [Concomitant]
     Active Substance: FLUTICASONE PROPIONATE\SALMETEROL XINAFOATE
  9. HARVONI [Suspect]
     Active Substance: LEDIPASVIR\SOFOSBUVIR
     Indication: CHRONIC HEPATITIS C
     Dosage: 1 DF, QD
     Route: 048
     Dates: start: 20160912, end: 20161214
  10. CHOLECALCIFEROL [Concomitant]
     Active Substance: CHOLECALCIFEROL
  11. TURMERIC                           /01079602/ [Concomitant]
     Active Substance: HERBALS\TURMERIC
  12. GABAPENTIN. [Concomitant]
     Active Substance: GABAPENTIN

REACTIONS (8)
  - Respiratory failure [Fatal]
  - Respiratory disorder [Unknown]
  - Back pain [Unknown]
  - Fluid overload [Unknown]
  - Idiopathic pulmonary fibrosis [Not Recovered/Not Resolved]
  - Anxiety [Unknown]
  - Drug use disorder [Unknown]
  - Spinal pain [Unknown]

NARRATIVE: CASE EVENT DATE: 201701
